FAERS Safety Report 10452279 (Version 2)
Quarter: 2014Q3

REPORT INFORMATION
  Report Type: Spontaneous
  Country: JP (occurrence: JP)
  Receive Date: 20140915
  Receipt Date: 20140915
  Transmission Date: 20150326
  Serious: No
  Sender: FDA-Public Use
  Company Number: JP-JNJFOC-20140409144

PATIENT
  Age: 80 Year
  Sex: Male

DRUGS (8)
  1. REMINYL [Suspect]
     Active Substance: GALANTAMINE
     Indication: PRODUCT USED FOR UNKNOWN INDICATION
     Route: 048
     Dates: start: 201404
  2. URIEF [Concomitant]
     Active Substance: SILODOSIN
     Route: 048
  3. NESINA [Concomitant]
     Active Substance: ALOGLIPTIN BENZOATE
     Route: 048
  4. REMINYL [Suspect]
     Active Substance: GALANTAMINE
     Indication: PRODUCT USED FOR UNKNOWN INDICATION
     Route: 048
     Dates: start: 201401
  5. MAINTATE [Concomitant]
     Active Substance: BISOPROLOL FUMARATE
     Route: 048
  6. VASOLAN [Concomitant]
     Active Substance: VERAPAMIL HYDROCHLORIDE
     Route: 048
  7. METGLUCO [Concomitant]
     Active Substance: METFORMIN HYDROCHLORIDE
     Route: 048
  8. ROZEREM [Concomitant]
     Active Substance: RAMELTEON
     Route: 048

REACTIONS (1)
  - Dyskinesia [Unknown]

NARRATIVE: CASE EVENT DATE: 201404
